APPROVED DRUG PRODUCT: TRAZODONE HYDROCHLORIDE
Active Ingredient: TRAZODONE HYDROCHLORIDE
Strength: 150MG
Dosage Form/Route: TABLET;ORAL
Application: A073137 | Product #003 | TE Code: AB
Applicant: SUN PHARMACEUTICAL INDUSTRIES INC
Approved: Dec 22, 1995 | RLD: No | RS: No | Type: RX